FAERS Safety Report 6034554-9 (Version None)
Quarter: 2009Q1

REPORT INFORMATION
  Report Type: 
  Country: None (occurrence: None)
  Receive Date: 20090112
  Receipt Date: 20090106
  Transmission Date: 20090719
  Serious: Yes (Hospitalization)
  Sender: FDA-Public Use
  Company Number: US-ELI_LILLY_AND_COMPANY-US200901000713

PATIENT
  Sex: Female

DRUGS (1)
  1. HUMALOG [Suspect]
     Indication: TYPE 2 DIABETES MELLITUS
     Dates: start: 20050101

REACTIONS (10)
  - BLOOD GLUCOSE DECREASED [None]
  - BLOOD GLUCOSE INCREASED [None]
  - CATARACT [None]
  - CHRONIC OBSTRUCTIVE PULMONARY DISEASE [None]
  - FEAR [None]
  - HEADACHE [None]
  - INCORRECT DOSE ADMINISTERED [None]
  - NECK PAIN [None]
  - NERVE COMPRESSION [None]
  - PNEUMONIA [None]
